FAERS Safety Report 19473028 (Version 1)
Quarter: 2021Q2

REPORT INFORMATION
  Report Type: Spontaneous
  Country: FR (occurrence: FR)
  Receive Date: 20210629
  Receipt Date: 20210629
  Transmission Date: 20210717
  Serious: Yes (Death)
  Sender: FDA-Public Use
  Company Number: FR-SLATE RUN PHARMACEUTICALS-21FR000555

PATIENT

DRUGS (3)
  1. HYDROXYCHLOROQUINE [Suspect]
     Active Substance: HYDROXYCHLOROQUINE
     Indication: COVID-19 PNEUMONIA
     Dosage: 200 MILLIGRAM, TID
     Dates: start: 2020
  2. AZITHROMYCIN USP [Suspect]
     Active Substance: AZITHROMYCIN
     Indication: COVID-19 PNEUMONIA
     Dosage: 250 MILLIGRAM, QD
     Dates: start: 2020
  3. AZITHROMYCIN USP [Suspect]
     Active Substance: AZITHROMYCIN
     Dosage: 500 MILLIGRAM, SINGLE
     Dates: start: 2020, end: 2020

REACTIONS (3)
  - Drug ineffective for unapproved indication [Unknown]
  - Death [Fatal]
  - Off label use [Unknown]

NARRATIVE: CASE EVENT DATE: 2020
